FAERS Safety Report 11355099 (Version 3)
Quarter: 2016Q1

REPORT INFORMATION
  Report Type: Spontaneous
  Country: US (occurrence: US)
  Receive Date: 20150807
  Receipt Date: 20160315
  Transmission Date: 20160525
  Serious: Yes (Other)
  Sender: FDA-Public Use
  Company Number: US-BAYER-2015-395058

PATIENT
  Age: 27 Year
  Sex: Female

DRUGS (2)
  1. MIRENA [Suspect]
     Active Substance: LEVONORGESTREL
     Indication: CONTRACEPTION
     Dosage: 20 MCG/24HR, CONT
     Route: 015
     Dates: start: 20130109, end: 20150116
  2. TRAMADOL. [Concomitant]
     Active Substance: TRAMADOL
     Indication: PAIN MANAGEMENT
     Dosage: 50 MG, UNK

REACTIONS (7)
  - Uterine perforation [None]
  - Device failure [None]
  - Abortion spontaneous [None]
  - Pregnancy with contraceptive device [None]
  - Pelvic organ injury [None]
  - Pelvic inflammatory disease [None]
  - Drug ineffective [None]

NARRATIVE: CASE EVENT DATE: 201401
